FAERS Safety Report 16989032 (Version 1)
Quarter: 2019Q4

REPORT INFORMATION
  Report Type: Spontaneous
  Country: AT (occurrence: AT)
  Receive Date: 20191104
  Receipt Date: 20191104
  Transmission Date: 20200122
  Serious: No
  Sender: FDA-Public Use
  Company Number: AT-BEH-2019108752

PATIENT
  Age: 49 Year
  Sex: Female
  Weight: 115 kg

DRUGS (1)
  1. HIZENTRA [Suspect]
     Active Substance: HUMAN IMMUNOGLOBULIN G
     Indication: PRIMARY IMMUNODEFICIENCY SYNDROME
     Dosage: 12 GRAM, QW
     Route: 058
     Dates: start: 20190425, end: 20191023

REACTIONS (7)
  - Injection site pain [Unknown]
  - Abdominal distension [Unknown]
  - Injection site warmth [Unknown]
  - Erythema [Unknown]
  - Injection site swelling [Unknown]
  - Feeling hot [Unknown]
  - Injection site erythema [Unknown]

NARRATIVE: CASE EVENT DATE: 201910
